FAERS Safety Report 23891059 (Version 1)
Quarter: 2024Q2

REPORT INFORMATION
  Report Type: Spontaneous
  Country: US (occurrence: US)
  Receive Date: 20240523
  Receipt Date: 20240523
  Transmission Date: 20240716
  Serious: No
  Sender: FDA-Public Use
  Company Number: US-002147023-NVSC2024US104396

PATIENT

DRUGS (1)
  1. KESIMPTA [Suspect]
     Active Substance: OFATUMUMAB
     Indication: Product used for unknown indication
     Route: 065

REACTIONS (6)
  - Pelvic discomfort [Unknown]
  - Burning sensation [Unknown]
  - Exercise tolerance decreased [Unknown]
  - Gastrooesophageal reflux disease [Unknown]
  - Eye pain [Unknown]
  - Injection site pain [Unknown]
